FAERS Safety Report 21436728 (Version 1)
Quarter: 2022Q4

REPORT INFORMATION
  Report Type: Spontaneous
  Country: SK (occurrence: SK)
  Receive Date: 20221010
  Receipt Date: 20221010
  Transmission Date: 20230112
  Serious: Yes (Hospitalization, Other)
  Sender: FDA-Public Use
  Company Number: None

PATIENT
  Age: 38 Year
  Sex: Female

DRUGS (4)
  1. PROPOFOL [Suspect]
     Active Substance: PROPOFOL
     Indication: Mammoplasty
     Dosage: 1 DOSAGE FORM
     Dates: start: 20220722, end: 20220725
  2. SUFENTA [Suspect]
     Active Substance: SUFENTANIL CITRATE
     Indication: Mammoplasty
     Dates: start: 20220722, end: 20220725
  3. TRACRIUM [Suspect]
     Active Substance: ATRACURIUM BESYLATE
     Indication: Mammoplasty
     Dates: start: 20220722, end: 20220725
  4. METAMIZOLE [Suspect]
     Active Substance: METAMIZOLE
     Indication: Mammoplasty
     Dates: start: 20220722, end: 20220725

REACTIONS (1)
  - Stevens-Johnson syndrome [Recovered/Resolved]
